FAERS Safety Report 16077088 (Version 1)
Quarter: 2019Q1

REPORT INFORMATION
  Report Type: Report from Study
  Country: US (occurrence: US)
  Receive Date: 20190315
  Receipt Date: 20190315
  Transmission Date: 20190418
  Serious: Yes (Hospitalization)
  Sender: FDA-Public Use
  Company Number: US-TEVA-2019-US-1024490

PATIENT
  Sex: Male
  Weight: 55.39 kg

DRUGS (4)
  1. JUXTAPID [Suspect]
     Active Substance: LOMITAPIDE MESYLATE
     Indication: TYPE IIA HYPERLIPIDAEMIA
     Dosage: 5 MILLIGRAM DAILY;
     Route: 048
     Dates: start: 20130502
  2. JUXTAPID [Suspect]
     Active Substance: LOMITAPIDE MESYLATE
     Dosage: 30 MILLIGRAM DAILY;
     Route: 048
  3. BOTOX [Suspect]
     Active Substance: ONABOTULINUMTOXINA
     Indication: BLADDER DISORDER
     Route: 065
  4. AMIODARONE [Suspect]
     Active Substance: AMIODARONE
     Route: 065

REACTIONS (7)
  - Adverse drug reaction [Unknown]
  - Atrial fibrillation [Not Recovered/Not Resolved]
  - Dizziness [Unknown]
  - Bladder disorder [Not Recovered/Not Resolved]
  - Arrhythmia [Unknown]
  - Blood pressure increased [Unknown]
  - Nausea [Unknown]

NARRATIVE: CASE EVENT DATE: 2018
